FAERS Safety Report 19620274 (Version 1)
Quarter: 2021Q3

REPORT INFORMATION
  Report Type: Spontaneous
  Country: US (occurrence: US)
  Receive Date: 20210727
  Receipt Date: 20210727
  Transmission Date: 20211014
  Serious: No
  Sender: FDA-Public Use
  Company Number: None

PATIENT
  Age: 51 Year
  Sex: Female
  Weight: 85.32 kg

DRUGS (23)
  1. ALBUTEROL HFA [Concomitant]
     Active Substance: ALBUTEROL SULFATE
  2. BENZONATATE. [Concomitant]
     Active Substance: BENZONATATE
  3. LORAZEPINE [Concomitant]
  4. HYDROCODONE? APAP [Concomitant]
  5. LEXAPRO [Concomitant]
     Active Substance: ESCITALOPRAM OXALATE
  6. RIZATRIPTAN. [Concomitant]
     Active Substance: RIZATRIPTAN
  7. ELIQUIS [Concomitant]
     Active Substance: APIXABAN
  8. VITAMIN D3 [Concomitant]
     Active Substance: CHOLECALCIFEROL
  9. XIIDRA [Concomitant]
     Active Substance: LIFITEGRAST
  10. BRAFTOVI [Suspect]
     Active Substance: ENCORAFENIB
     Indication: MALIGNANT MELANOMA
     Route: 048
     Dates: start: 20200831
  11. AZELASTINE. [Concomitant]
     Active Substance: AZELASTINE HYDROCHLORIDE
  12. ZYRTEC [Concomitant]
     Active Substance: CETIRIZINE HYDROCHLORIDE
  13. MEKTOVI [Suspect]
     Active Substance: BINIMETINIB
     Indication: MALIGNANT MELANOMA
     Route: 048
     Dates: start: 20200831
  14. LOSARTAN. [Concomitant]
     Active Substance: LOSARTAN
  15. MONTELUKAST [Concomitant]
     Active Substance: MONTELUKAST SODIUM
  16. TRAMADOL. [Concomitant]
     Active Substance: TRAMADOL
  17. ONDANSETRON [Concomitant]
     Active Substance: ONDANSETRON
  18. BUTALBITAL, ACETAMINOPHEN, AND CAFFEINE [Concomitant]
     Active Substance: ACETAMINOPHEN\BUTALBITAL\CAFFEINE
  19. FAMOTIDINE. [Concomitant]
     Active Substance: FAMOTIDINE
  20. FLONASE [Concomitant]
     Active Substance: FLUTICASONE PROPIONATE
  21. HYDROCODONE?HOMATROPINE [Concomitant]
  22. PANTOPRAZOLE [Concomitant]
     Active Substance: PANTOPRAZOLE
  23. TRIAMCINOLONE [Concomitant]
     Active Substance: TRIAMCINOLONE

REACTIONS (1)
  - Pollakiuria [None]

NARRATIVE: CASE EVENT DATE: 20210726
